FAERS Safety Report 4681371-8 (Version None)
Quarter: 2005Q2

REPORT INFORMATION
  Report Type: 
  Country: None (occurrence: None)
  Receive Date: 20050601
  Receipt Date: 20050519
  Transmission Date: 20051028
  Serious: Yes (Hospitalization, Other)
  Sender: FDA-Public Use
  Company Number: HQWYE629511MAY05

PATIENT
  Age: 40 Year
  Sex: Male
  Weight: 63.56 kg

DRUGS (16)
  1. RAPAMUNE [Suspect]
     Indication: PROPHYLAXIS AGAINST TRANSPLANT REJECTION
     Dosage: 6 MG 1X PER 1 DAY, ORAL
     Route: 048
     Dates: start: 20050418
  2. PREDNISONE [Suspect]
     Dosage: 30 MG 1X PER 1 DAY, ORAL
     Route: 048
  3. TACROLIMUS (TACROLIMUS, ) [Suspect]
     Indication: PROPHYLAXIS AGAINST TRANSPLANT REJECTION
     Dosage: ORAL
     Route: 048
  4. METOCLOPRAMIDE [Concomitant]
  5. COUMADIN [Concomitant]
  6. SEPTRA DS [Concomitant]
  7. ASPIRIN [Concomitant]
  8. PROTONIX [Concomitant]
  9. CELLCEPT [Concomitant]
  10. NYSTATIN [Concomitant]
  11. K-PHOS NEUTRAL (POTASSIUM PHOSPHATE MONOBASIC/SODIUM PHOSPHATE DIBASIC [Concomitant]
  12. NORVASC [Concomitant]
  13. ENALAPRIL MALEATE [Concomitant]
  14. LOPRESSOR [Concomitant]
  15. LIPITOR [Concomitant]
  16. ZENAPAX [Concomitant]

REACTIONS (6)
  - GLUCOSE URINE PRESENT [None]
  - HYPERGLYCAEMIA [None]
  - INTERNATIONAL NORMALISED RATIO DECREASED [None]
  - PULMONARY CONGESTION [None]
  - PULMONARY VASCULAR DISORDER [None]
  - URINE KETONE BODY PRESENT [None]
